FAERS Safety Report 8581747-2 (Version None)
Quarter: 2012Q3

REPORT INFORMATION
  Report Type: 
  Country: None (occurrence: None)
  Receive Date: 20120801
  Receipt Date: 20120801
  Transmission Date: 20120928
  Serious: Yes (Hospitalization, Other)
  Sender: FDA-Public Use
  Company Number: None

PATIENT
  Sex: Male
  Weight: 72.5755 kg

DRUGS (1)
  1. JANUVIA [Suspect]
     Indication: TYPE 2 DIABETES MELLITUS
     Dosage: 100 MG DAILY PO
     Route: 048
     Dates: start: 20120410, end: 20120725

REACTIONS (10)
  - CONSTIPATION [None]
  - OROPHARYNGEAL PAIN [None]
  - PAIN [None]
  - HEADACHE [None]
  - BLOOD GLUCOSE INCREASED [None]
  - FATIGUE [None]
  - NAUSEA [None]
  - ASTHENIA [None]
  - DISTURBANCE IN ATTENTION [None]
  - NEPHROPATHY TOXIC [None]
